FAERS Safety Report 7670269 (Version 4)
Quarter: 2013Q2

REPORT INFORMATION
  Report Type: Spontaneous
  Country: US (occurrence: US)
  Receive Date: 20101116
  Receipt Date: 20130530
  Transmission Date: 20140414
  Serious: Yes (Life-Threatening, Hospitalization, Other)
  Sender: FDA-Public Use
  Company Number: US-JNJFOC-20101104462

PATIENT
  Sex: Female

DRUGS (15)
  1. RISPERIDONE [Suspect]
     Indication: DISTURBANCE IN SOCIAL BEHAVIOUR
     Route: 048
  2. RISPERIDONE [Suspect]
     Indication: DISTURBANCE IN SOCIAL BEHAVIOUR
     Route: 048
     Dates: start: 20090605
  3. RISPERIDONE [Suspect]
     Indication: DISTURBANCE IN SOCIAL BEHAVIOUR
     Route: 048
     Dates: start: 20090607
  4. RISPERIDONE [Suspect]
     Indication: DISTURBANCE IN SOCIAL BEHAVIOUR
     Route: 048
     Dates: start: 20090606
  5. RISPERIDONE [Suspect]
     Indication: AGGRESSION
     Route: 048
     Dates: start: 20090607
  6. RISPERIDONE [Suspect]
     Indication: AGGRESSION
     Route: 048
  7. RISPERIDONE [Suspect]
     Indication: AGGRESSION
     Route: 048
     Dates: start: 20090606
  8. RISPERIDONE [Suspect]
     Indication: AGGRESSION
     Route: 048
     Dates: start: 20090605
  9. BABY ASPIRIN [Suspect]
     Indication: PROPHYLAXIS
     Route: 065
  10. DONEPEZIL [Suspect]
     Indication: DEMENTIA ALZHEIMER^S TYPE
     Route: 065
  11. CITALOPRAM [Suspect]
     Indication: DEPRESSION
     Route: 065
  12. LEVOTHYROXINE [Suspect]
     Indication: HYPOTHYROIDISM
     Route: 065
  13. ATENOLOL [Suspect]
     Indication: HYPERTENSION
     Route: 065
  14. SMX-TMP [Suspect]
     Indication: PRODUCT USED FOR UNKNOWN INDICATION
     Dosage: 2 DOUBLE STRENGTH TABLETS/DAY
     Route: 065
  15. MEMANTINE [Suspect]
     Indication: DEMENTIA ALZHEIMER^S TYPE
     Route: 065

REACTIONS (1)
  - Serotonin syndrome [Recovered/Resolved]
